FAERS Safety Report 8502973-4 (Version None)
Quarter: 2012Q3

REPORT INFORMATION
  Report Type: 
  Country: None (occurrence: None)
  Receive Date: 20120711
  Receipt Date: 20120709
  Transmission Date: 20120928
  Serious: Yes (Other)
  Sender: FDA-Public Use
  Company Number: PHHY2012CA058102

PATIENT
  Sex: Female

DRUGS (2)
  1. ZOLEDRONOC ACID [Suspect]
     Indication: OSTEOPOROSIS
     Route: 042
     Dates: start: 20100803
  2. ZOLEDRONOC ACID [Suspect]
     Route: 042
     Dates: start: 20110803

REACTIONS (2)
  - TERMINAL STATE [None]
  - LUNG NEOPLASM MALIGNANT [None]
